FAERS Safety Report 6003865-5 (Version None)
Quarter: 2008Q4

REPORT INFORMATION
  Report Type: 
  Country: None (occurrence: None)
  Receive Date: 20081216
  Receipt Date: 20081212
  Transmission Date: 20090506
  Serious: Yes (Death)
  Sender: FDA-Public Use
  Company Number: PHEH2008US11050

PATIENT
  Sex: Male

DRUGS (1)
  1. GLEEVEC [Suspect]
     Indication: LEUKAEMIA
     Dosage: 400 MG, QD
     Dates: start: 20080930, end: 20081211

REACTIONS (1)
  - PNEUMONIA [None]
